FAERS Safety Report 24214538 (Version 8)
Quarter: 2024Q4

REPORT INFORMATION
  Report Type: Other
  Country: US (occurrence: US)
  Receive Date: 20240815
  Receipt Date: 20241219
  Transmission Date: 20250115
  Serious: No
  Sender: TRAVERE THERAPEUTICS
  Company Number: US-TRAVERE-2024TVT00751

PATIENT
  Age: 45 Year
  Sex: Female

DRUGS (3)
  1. FILSPARI [Suspect]
     Active Substance: SPARSENTAN
     Indication: IgA nephropathy
     Route: 048
     Dates: start: 2024
  2. BYSTOLIC [Concomitant]
     Active Substance: NEBIVOLOL HYDROCHLORIDE
  3. VITAMINS [Concomitant]
     Active Substance: VITAMINS

REACTIONS (13)
  - Rash pruritic [Recovered/Resolved]
  - Muscle spasms [Unknown]
  - Wrong technique in product usage process [Unknown]
  - Blood pressure systolic increased [Recovered/Resolved]
  - Headache [None]
  - Neck pain [Unknown]
  - Nausea [Recovered/Resolved]
  - Abdominal discomfort [None]
  - Gastroenteritis [None]
  - Renal disorder [Unknown]
  - Back pain [Recovered/Resolved]
  - Dysgeusia [Recovered/Resolved]
  - Peripheral swelling [Unknown]

NARRATIVE: CASE EVENT DATE: 20240923
